FAERS Safety Report 10768562 (Version 1)
Quarter: 2015Q1

REPORT INFORMATION
  Report Type: Spontaneous
  Country: US (occurrence: None)
  Receive Date: 20150205
  Receipt Date: 20150205
  Transmission Date: 20150721
  Serious: No
  Sender: FDA-Public Use
  Company Number: None

PATIENT

DRUGS (1)
  1. FIBRIN SEALANT [Suspect]
     Active Substance: FIBRIN SEALANT

REACTIONS (3)
  - Product label confusion [None]
  - Expired product administered [None]
  - Product expiration date issue [None]

NARRATIVE: CASE EVENT DATE: 20140911
